FAERS Safety Report 12887846 (Version 3)
Quarter: 2018Q2

REPORT INFORMATION
  Report Type: Report from Study
  Country: JP (occurrence: JP)
  Receive Date: 20161027
  Receipt Date: 20180421
  Transmission Date: 20180711
  Serious: Yes (Death, Hospitalization, Other)
  Sender: FDA-Public Use
  Company Number: JP-AMGEN-JPNSP2016148958

PATIENT
  Age: 67 Year
  Sex: Female

DRUGS (21)
  1. LENADEX [Concomitant]
     Active Substance: DEXAMETHASONE ACETATE
     Dosage: 20 MG, UNK
     Dates: start: 20161012
  2. LENADEX [Concomitant]
     Active Substance: DEXAMETHASONE ACETATE
     Dosage: 4 MG, UNK
     Dates: start: 20161110
  3. LENADEX [Concomitant]
     Active Substance: DEXAMETHASONE ACETATE
     Dosage: 20 MG, UNK
     Dates: start: 20161123
  4. VALACICLOVIR [Concomitant]
     Active Substance: VALACYCLOVIR HYDROCHLORIDE
     Dosage: UNK
  5. LENADEX [Concomitant]
     Active Substance: DEXAMETHASONE ACETATE
     Dosage: 4 MG, UNK
     Dates: start: 20161013
  6. REVLIMID [Concomitant]
     Active Substance: LENALIDOMIDE
     Dosage: UNK
     Dates: start: 20161109, end: 20161129
  7. LENADEX [Concomitant]
     Active Substance: DEXAMETHASONE ACETATE
     Dosage: 4 MG, UNK
     Dates: start: 20161110
  8. REVLIMID [Concomitant]
     Active Substance: LENALIDOMIDE
     Dosage: UNK
     Dates: start: 20161012, end: 20161101
  9. CARFILZOMIB [Suspect]
     Active Substance: CARFILZOMIB
     Dosage: 15 MG, UNK
     Route: 041
     Dates: start: 20161109, end: 20161110
  10. LENADEX [Concomitant]
     Active Substance: DEXAMETHASONE ACETATE
     Dosage: 20 MG, UNK
     Dates: start: 20161019
  11. LENADEX [Concomitant]
     Active Substance: DEXAMETHASONE ACETATE
     Dosage: 4 MG, UNK
     Dates: start: 20161027
  12. CARFILZOMIB [Suspect]
     Active Substance: CARFILZOMIB
     Indication: PLASMA CELL MYELOMA
     Dosage: 20 MG, UNK
     Route: 041
     Dates: start: 20161012, end: 20161013
  13. LENADEX [Concomitant]
     Active Substance: DEXAMETHASONE ACETATE
     Dosage: 20 MG, UNK
     Dates: start: 20161026
  14. CARFILZOMIB [Suspect]
     Active Substance: CARFILZOMIB
     Dosage: 15 MG, UNK
     Route: 041
     Dates: start: 20161116, end: 20161117
  15. BAYASPIRIN [Suspect]
     Active Substance: ASPIRIN
     Indication: PRODUCT USED FOR UNKNOWN INDICATION
     Dosage: UNK
     Route: 065
  16. LENADEX [Concomitant]
     Active Substance: DEXAMETHASONE ACETATE
     Dosage: 4 MG, UNK
     Dates: start: 20161020
  17. LENADEX [Concomitant]
     Active Substance: DEXAMETHASONE ACETATE
     Dosage: 20 MG, UNK
     Dates: start: 20161102
  18. LENADEX [Concomitant]
     Active Substance: DEXAMETHASONE ACETATE
     Dosage: 4 MG, UNK
     Dates: start: 20161117
  19. CARFILZOMIB [Suspect]
     Active Substance: CARFILZOMIB
     Dosage: 15 MG, UNK
     Route: 041
     Dates: start: 20161026, end: 20161027
  20. LENADEX [Concomitant]
     Active Substance: DEXAMETHASONE ACETATE
     Dosage: 20 MG, UNK
     Dates: start: 20161109
  21. LENADEX [Concomitant]
     Active Substance: DEXAMETHASONE ACETATE
     Dosage: 20 MG, UNK
     Dates: start: 20161116

REACTIONS (4)
  - Hepatic enzyme increased [Recovered/Resolved]
  - Hepatic function abnormal [Not Recovered/Not Resolved]
  - Pancytopenia [Not Recovered/Not Resolved]
  - Epistaxis [Not Recovered/Not Resolved]

NARRATIVE: CASE EVENT DATE: 20161015
